FAERS Safety Report 26021362 (Version 1)
Quarter: 2025Q4

REPORT INFORMATION
  Report Type: Spontaneous
  Country: CA (occurrence: CA)
  Receive Date: 20251110
  Receipt Date: 20251110
  Transmission Date: 20260118
  Serious: Yes (Other)
  Sender: AMGEN
  Company Number: CA-AMGEN-CANSP2025219133

PATIENT
  Sex: Male

DRUGS (1)
  1. WEZLANA [Suspect]
     Active Substance: USTEKINUMAB-AUUB
     Indication: Colitis ulcerative
     Dosage: 90 MILLIGRAM, Q8WK
     Route: 065
     Dates: start: 20241018

REACTIONS (2)
  - Colitis ulcerative [Unknown]
  - Therapy partial responder [Unknown]
